FAERS Safety Report 22133367 (Version 1)
Quarter: 2023Q1

REPORT INFORMATION
  Report Type: Spontaneous
  Country: CN (occurrence: CN)
  Receive Date: 20230324
  Receipt Date: 20230324
  Transmission Date: 20230418
  Serious: Yes (Life-Threatening, Other)
  Sender: FDA-Public Use
  Company Number: None

PATIENT
  Age: 52 Year
  Sex: Male

DRUGS (2)
  1. MANNITOL [Suspect]
     Active Substance: MANNITOL
     Indication: Reduction of increased intracranial pressure
     Dosage: 150 MILLILITERS (ML), 3 TIMES A DAY
     Route: 041
     Dates: start: 20230223, end: 20230224
  2. MANNITOL [Suspect]
     Active Substance: MANNITOL
     Indication: Traumatic intracranial haemorrhage

REACTIONS (3)
  - Traumatic intracranial haemorrhage [Unknown]
  - Condition aggravated [Unknown]
  - Hypotension [Recovering/Resolving]

NARRATIVE: CASE EVENT DATE: 20230224
